FAERS Safety Report 22664101 (Version 3)
Quarter: 2024Q2

REPORT INFORMATION
  Report Type: Spontaneous
  Country: US (occurrence: US)
  Receive Date: 20230703
  Receipt Date: 20240405
  Transmission Date: 20240715
  Serious: No
  Sender: FDA-Public Use
  Company Number: US-CORIUM, LLC-2023COR000134

PATIENT
  Sex: Male

DRUGS (2)
  1. ADLARITY [Suspect]
     Active Substance: DONEPEZIL HYDROCHLORIDE
     Indication: Dementia
     Dosage: UNK
     Route: 062
     Dates: start: 20230106
  2. DEVICE [Suspect]
     Active Substance: DEVICE

REACTIONS (5)
  - Pruritus [Not Recovered/Not Resolved]
  - Skin irritation [Unknown]
  - Product adhesion issue [Unknown]
  - Device malfunction [Unknown]
  - Product physical issue [Unknown]

NARRATIVE: CASE EVENT DATE: 20230101
